FAERS Safety Report 9698060 (Version 1)
Quarter: 2013Q4

REPORT INFORMATION
  Report Type: Spontaneous
  Country: JP (occurrence: JP)
  Receive Date: 20131120
  Receipt Date: 20131120
  Transmission Date: 20140711
  Serious: Yes (Life-Threatening, Other)
  Sender: FDA-Public Use
  Company Number: JP-ASTRAZENECA-2013SE84743

PATIENT
  Age: 40 Year
  Sex: Female
  Weight: 67 kg

DRUGS (8)
  1. SEROQUEL [Suspect]
     Indication: SUICIDE ATTEMPT
     Route: 048
  2. SEROQUEL [Suspect]
     Indication: SUICIDE ATTEMPT
     Dosage: 25 MG UID/QD
     Route: 048
     Dates: start: 20131109, end: 20131109
  3. PSYCHOTROPIC AGENT [Concomitant]
  4. ANTIDEPRESSANTS [Concomitant]
  5. HYPNOTICS AND SEDATIVES [Concomitant]
  6. ANTIANXIETICS [Concomitant]
  7. DRUGS FOR TREATMENT OF PEPTIC ULCER [Concomitant]
     Indication: PEPTIC ULCER
  8. DRUGS FOR TREATMENT OF PEPTIC ULCER [Concomitant]
     Indication: PEPTIC ULCER
     Route: 048

REACTIONS (5)
  - Intentional overdose [Unknown]
  - Suicide attempt [Unknown]
  - Hyperventilation [Unknown]
  - Dizziness [Unknown]
  - Asthenia [Unknown]
